FAERS Safety Report 23055561 (Version 1)
Quarter: 2023Q4

REPORT INFORMATION
  Report Type: Report from Study
  Country: IE (occurrence: None)
  Receive Date: 20231011
  Receipt Date: 20231011
  Transmission Date: 20240109
  Serious: Yes (Death, Hospitalization)
  Sender: FDA-Public Use
  Company Number: 2023A200300

PATIENT
  Age: 18024 Day
  Sex: Male

DRUGS (8)
  1. FASENRA [Suspect]
     Active Substance: BENRALIZUMAB
     Indication: Asthma
     Route: 058
     Dates: start: 20230628
  2. FASENRA [Suspect]
     Active Substance: BENRALIZUMAB
     Indication: Asthma
     Route: 058
     Dates: start: 20230726
  3. PREDNISOLONE [Concomitant]
     Active Substance: PREDNISOLONE
  4. SYMBICORT [Concomitant]
     Active Substance: BUDESONIDE\FORMOTEROL FUMARATE DIHYDRATE
  5. COMBIVENT [Concomitant]
     Active Substance: ALBUTEROL SULFATE\IPRATROPIUM BROMIDE
     Dosage: 2.0MG AS REQUIRED
  6. AMLODIPINE [Concomitant]
     Active Substance: AMLODIPINE BESYLATE
  7. BUMETANIDE [Concomitant]
     Active Substance: BUMETANIDE
  8. CLOPRIDOGREL [Concomitant]

REACTIONS (2)
  - Death [Fatal]
  - Asthma [Unknown]

NARRATIVE: CASE EVENT DATE: 20230827
